FAERS Safety Report 19124270 (Version 2)
Quarter: 2021Q2

REPORT INFORMATION
  Report Type: Report from Study
  Country: US (occurrence: US)
  Receive Date: 20210413
  Receipt Date: 20210510
  Transmission Date: 20210717
  Serious: Yes (Life-Threatening, Hospitalization)
  Sender: FDA-Public Use
  Company Number: US-ROCHE-2808631

PATIENT
  Age: 71 Year
  Sex: Male
  Weight: 99.9 kg

DRUGS (10)
  1. DOXORUBICIN HYDROCHLORIDE. [Suspect]
     Active Substance: DOXORUBICIN HYDROCHLORIDE
     Indication: RICHTER^S SYNDROME
     Route: 042
     Dates: start: 20210318
  2. ELIQUIS [Concomitant]
     Active Substance: APIXABAN
  3. PREDNISONE. [Suspect]
     Active Substance: PREDNISONE
     Indication: RICHTER^S SYNDROME
     Dosage: ON DAY 1 AND DAY 5
     Route: 048
     Dates: start: 20210318
  4. VENETOCLAX. [Suspect]
     Active Substance: VENETOCLAX
     Indication: RICHTER^S SYNDROME
     Route: 048
     Dates: start: 20210408
  5. RITUXIMAB. [Suspect]
     Active Substance: RITUXIMAB
     Indication: RICHTER^S SYNDROME
     Dosage: PER PROTOCOL
     Route: 041
     Dates: start: 20210318
  6. VINCRISTINE SULFATE. [Suspect]
     Active Substance: VINCRISTINE SULFATE
     Indication: RICHTER^S SYNDROME
     Route: 042
     Dates: start: 20210318
  7. ZOVIRAX [Concomitant]
     Active Substance: ACYCLOVIR
  8. CYCLOPHOSPHAMIDE. [Suspect]
     Active Substance: CYCLOPHOSPHAMIDE
     Indication: RICHTER^S SYNDROME
     Route: 042
     Dates: start: 20210318
  9. TYLENOL [Concomitant]
     Active Substance: ACETAMINOPHEN
     Dates: start: 20210318
  10. ZYLOPRIM [Concomitant]
     Active Substance: ALLOPURINOL

REACTIONS (5)
  - Febrile neutropenia [Recovered/Resolved]
  - Dizziness [Unknown]
  - Fall [Unknown]
  - Sepsis [Unknown]
  - Sepsis [Recovered/Resolved]

NARRATIVE: CASE EVENT DATE: 20210324
